FAERS Safety Report 7701360-6 (Version None)
Quarter: 2011Q3

REPORT INFORMATION
  Report Type: 
  Country: None (occurrence: None)
  Receive Date: 20110822
  Receipt Date: 20110818
  Transmission Date: 20111222
  Serious: Yes (Life-Threatening, Hospitalization, Other)
  Sender: FDA-Public Use
  Company Number: JP-ASTRAZENECA-2011SE20289

PATIENT
  Age: 29952 Day
  Sex: Female
  Weight: 45 kg

DRUGS (76)
  1. FANMIL-R [Concomitant]
     Indication: EXTRASYSTOLES
     Route: 048
     Dates: start: 20110401
  2. TOSUFLO [Concomitant]
     Route: 047
     Dates: start: 20110331
  3. SOLACET F [Concomitant]
     Route: 042
     Dates: start: 20110402, end: 20110402
  4. MICARDIS [Concomitant]
     Indication: HYPERTENSION
     Route: 048
     Dates: start: 20110401, end: 20110406
  5. OMEPRAZOLE [Concomitant]
     Indication: GASTRITIS PROPHYLAXIS
     Route: 048
     Dates: start: 20110401, end: 20110406
  6. OTSUKA NORMAL SALINE [Concomitant]
     Indication: ILL-DEFINED DISORDER
     Route: 042
     Dates: start: 20110401, end: 20110402
  7. OTSUKA NORMAL SALINE [Concomitant]
     Route: 042
     Dates: start: 20110402, end: 20110402
  8. OTSUKA NORMAL SALINE [Concomitant]
     Route: 042
     Dates: start: 20110402, end: 20110402
  9. OTSUKA NORMAL SALINE [Concomitant]
     Route: 042
     Dates: start: 20110407, end: 20110415
  10. GOODMIN [Concomitant]
     Dosage: PRN
     Route: 048
     Dates: start: 20110425
  11. TELMISARTAN [Concomitant]
     Indication: HYPERTENSION
     Route: 048
     Dates: start: 20110401
  12. ALPRAZOLAM [Concomitant]
     Indication: INSOMNIA
     Route: 048
     Dates: start: 20110331
  13. LOCOID [Concomitant]
     Route: 003
     Dates: start: 20110331
  14. TAON [Concomitant]
     Route: 003
     Dates: start: 20110331
  15. DIAINAMIX [Concomitant]
     Indication: VITAMIN SUPPLEMENTATION
     Route: 042
     Dates: start: 20110401, end: 20110402
  16. POTASSIUM CHLORIDE [Concomitant]
     Route: 042
     Dates: start: 20110405, end: 20110405
  17. OMEPRAZOLE [Concomitant]
     Indication: GASTROINTESTINAL HAEMORRHAGE
     Route: 048
     Dates: start: 20110401, end: 20110406
  18. OTSUKA NORMAL SALINE [Concomitant]
     Route: 042
     Dates: start: 20110407, end: 20110415
  19. ZETIA [Concomitant]
     Indication: HYPERCHOLESTEROLAEMIA
     Route: 048
     Dates: start: 20110401
  20. OMEPRAZOLE [Concomitant]
     Route: 042
     Dates: start: 20110407, end: 20110415
  21. OTSUKA NORMAL SALINE [Concomitant]
     Indication: DEHYDRATION
     Route: 042
     Dates: start: 20110401, end: 20110402
  22. OTSUKA NORMAL SALINE [Concomitant]
     Route: 042
     Dates: start: 20110401, end: 20110401
  23. OTSUKA NORMAL SALINE [Concomitant]
     Route: 042
     Dates: start: 20110407, end: 20110415
  24. LASIX [Concomitant]
     Route: 042
     Dates: start: 20110412, end: 20110414
  25. CLOPIDOGREL [Suspect]
     Indication: ACUTE CORONARY SYNDROME
     Route: 048
     Dates: start: 20110401, end: 20110406
  26. ASPIRIN [Suspect]
     Indication: ACUTE CORONARY SYNDROME
     Route: 048
     Dates: start: 20110401, end: 20110406
  27. HEPARIN SODIUM INJECTION [Concomitant]
     Indication: THROMBOSIS PROPHYLAXIS
     Route: 042
     Dates: start: 20110401, end: 20110404
  28. BESASTAR SR [Concomitant]
     Indication: HYPERCHOLESTEROLAEMIA
     Route: 048
     Dates: start: 20110401
  29. SENNOSIDE [Concomitant]
     Indication: CONSTIPATION
     Dosage: PRN
     Route: 048
     Dates: start: 20110331
  30. SOLACET F [Concomitant]
     Indication: FLUID REPLACEMENT
     Route: 042
     Dates: start: 20110401, end: 20110401
  31. OMEPRAZOLE [Concomitant]
     Route: 042
     Dates: start: 20110407, end: 20110415
  32. OTSUKA NORMAL SALINE [Concomitant]
     Route: 042
     Dates: start: 20110402, end: 20110402
  33. OTSUKA NORMAL SALINE [Concomitant]
     Route: 042
     Dates: start: 20110402, end: 20110402
  34. SALINHES [Concomitant]
     Indication: HYPERTENSION
     Route: 042
     Dates: start: 20110402, end: 20110402
  35. BISOPROLOL FUMARATE [Concomitant]
     Indication: CARDIAC FAILURE
     Route: 048
     Dates: start: 20110402, end: 20110406
  36. GOODMIN [Concomitant]
     Indication: INSOMNIA
     Route: 048
     Dates: start: 20110402, end: 20110402
  37. ASPIRIN [Suspect]
     Indication: THROMBOSIS PROPHYLAXIS
     Route: 048
     Dates: start: 20110401, end: 20110406
  38. PHARCOBA [Concomitant]
     Route: 047
     Dates: start: 20110331
  39. OTSUKA NORMAL SALINE [Concomitant]
     Route: 042
     Dates: start: 20110407, end: 20110407
  40. OTSUKA NORMAL SALINE [Concomitant]
     Route: 042
     Dates: start: 20110407, end: 20110407
  41. HALOPERIDOL [Concomitant]
     Indication: RESTLESSNESS
     Route: 030
     Dates: start: 20110402, end: 20110403
  42. CORINAEL [Concomitant]
     Indication: HYPERTENSION
     Route: 048
     Dates: start: 20110331
  43. OMEPRAZOLE ^TOWA^ [Concomitant]
     Indication: GASTROOESOPHAGEAL REFLUX DISEASE
     Route: 048
     Dates: start: 20110331
  44. S-CARDY [Concomitant]
     Indication: AGE-RELATED MACULAR DEGENERATION
     Dosage: 3.0 T
     Route: 048
     Dates: start: 20110401
  45. GLUCOSE [Concomitant]
     Indication: BLOOD GLUCOSE DECREASED
     Route: 042
     Dates: start: 20110401, end: 20110401
  46. POTASSIUM CHLORIDE [Concomitant]
     Indication: FLUID REPLACEMENT
     Route: 042
     Dates: start: 20110401, end: 20110401
  47. POTASSIUM CHLORIDE [Concomitant]
     Route: 042
     Dates: start: 20110402, end: 20110403
  48. OTSUKA NORMAL SALINE [Concomitant]
     Indication: TRANSFUSION
     Route: 042
     Dates: start: 20110401, end: 20110402
  49. OTSUKA NORMAL SALINE [Concomitant]
     Route: 042
     Dates: start: 20110401, end: 20110401
  50. OTSUKA NORMAL SALINE [Concomitant]
     Route: 042
     Dates: start: 20110401, end: 20110401
  51. OTSUKA NORMAL SALINE [Concomitant]
     Route: 042
     Dates: start: 20110401, end: 20110401
  52. OTSUKA NORMAL SALINE [Concomitant]
     Route: 042
     Dates: start: 20110401, end: 20110401
  53. PRIMPERAN TAB [Concomitant]
     Indication: NAUSEA
     Route: 042
     Dates: start: 20110402, end: 20110402
  54. PLACEBO [Suspect]
     Indication: ACUTE CORONARY SYNDROME
     Dosage: ONCE DAILY
     Route: 048
     Dates: start: 20110401, end: 20110401
  55. ASPIRIN [Suspect]
     Route: 048
     Dates: start: 20110415
  56. ASPIRIN [Suspect]
     Route: 048
     Dates: start: 20110415
  57. PLAVIX [Concomitant]
     Indication: THROMBOSIS PROPHYLAXIS
     Route: 048
     Dates: start: 20110418
  58. GLUCOSE [Concomitant]
     Route: 042
     Dates: start: 20110402, end: 20110402
  59. ADETPHOS-L KOWA [Concomitant]
     Indication: NODAL ARRHYTHMIA
     Route: 042
     Dates: start: 20110402, end: 20110402
  60. HUMULIN R [Concomitant]
     Indication: GLUCOSE TOLERANCE IMPAIRED
     Route: 058
     Dates: start: 20110402, end: 20110402
  61. LIVALO [Concomitant]
     Indication: HYPERCHOLESTEROLAEMIA
     Route: 048
     Dates: start: 20110401, end: 20110406
  62. SIGMART [Concomitant]
     Indication: ANGINA UNSTABLE
     Route: 042
     Dates: start: 20110401, end: 20110402
  63. OTSUKA NORMAL SALINE [Concomitant]
     Route: 042
     Dates: start: 20110401, end: 20110401
  64. OTSUKA NORMAL SALINE [Concomitant]
     Route: 042
     Dates: start: 20110402, end: 20110402
  65. VERAPAMIL HCL [Concomitant]
     Indication: NODAL ARRHYTHMIA
     Route: 042
     Dates: start: 20110402, end: 20110402
  66. RISPERIDONE [Concomitant]
     Indication: RESTLESSNESS
     Route: 048
     Dates: start: 20110403, end: 20110403
  67. RISPERIDONE [Concomitant]
     Route: 048
     Dates: start: 20110411, end: 20110411
  68. DISOPYRAMIDE PHOSPHATE [Suspect]
     Indication: NODAL ARRHYTHMIA
     Route: 048
     Dates: start: 20110402, end: 20110404
  69. HEPARIN SODIUM INJECTION [Concomitant]
     Route: 042
     Dates: start: 20110408, end: 20110419
  70. VESICARE [Concomitant]
     Indication: OSTEOPOROSIS
     Route: 048
     Dates: start: 20110331
  71. FLUOMETHOLONE [Concomitant]
     Dosage: 4 DROPS (LEFT)
     Route: 047
     Dates: start: 20110331
  72. GAMOFA [Concomitant]
     Indication: GASTRITIS PROPHYLAXIS
     Route: 042
     Dates: start: 20110402, end: 20110402
  73. POTASSIUM CHLORIDE [Concomitant]
     Route: 042
     Dates: start: 20110404, end: 20110404
  74. OTSUKA NORMAL SALINE [Concomitant]
     Route: 042
     Dates: start: 20110402, end: 20110402
  75. OTSUKA NORMAL SALINE [Concomitant]
     Route: 042
     Dates: start: 20110407, end: 20110407
  76. LASIX [Concomitant]
     Indication: CARDIAC FAILURE
     Route: 042
     Dates: start: 20110402, end: 20110402

REACTIONS (3)
  - GASTROINTESTINAL HAEMORRHAGE [None]
  - URINARY TRACT INFECTION [None]
  - VENTRICULAR FIBRILLATION [None]
